FAERS Safety Report 7682813-6 (Version None)
Quarter: 2011Q3

REPORT INFORMATION
  Report Type: 
  Country: None (occurrence: None)
  Receive Date: 20110815
  Receipt Date: 20110804
  Transmission Date: 20111222
  Serious: Yes (Hospitalization, Disabling, Other)
  Sender: FDA-Public Use
  Company Number: BR-GENENTECH-305346

PATIENT
  Sex: Female
  Weight: 80 kg

DRUGS (27)
  1. LOSARTAN POTASSIUM [Concomitant]
     Dosage: UNK
  2. NEOMYCIN [Concomitant]
     Dosage: UNK
  3. RITUXIMAB [Suspect]
     Dosage: UNK
     Route: 042
     Dates: start: 20100629, end: 20100714
  4. DICLOFENAC SODIUM [Concomitant]
     Indication: PRODUCT USED FOR UNKNOWN INDICATION
     Dosage: 100 MG, UNK
  5. PENICILLAMINE [Concomitant]
     Indication: RHEUMATOID ARTHRITIS
     Dosage: 250 MG, UNK
  6. LYRICA [Concomitant]
     Indication: PRODUCT USED FOR UNKNOWN INDICATION
     Dosage: 75 MG, UNK
  7. OMEPRAZOLE [Concomitant]
     Indication: GASTRIC DISORDER
     Dosage: 20 MG, UNK
  8. CELEBREX [Concomitant]
     Dosage: UNK
  9. LOSARTAN POTASSIUM [Concomitant]
     Indication: HYPERTENSION
     Dosage: 50 MG, UNK
  10. DIURISA [Concomitant]
     Indication: DIURETIC THERAPY
     Dosage: 5 MG, UNK
  11. RITUXIMAB [Suspect]
     Indication: RHEUMATOID ARTHRITIS
     Dosage: UNK
     Route: 042
     Dates: start: 20081117, end: 20081117
  12. AZITHROMYCIN [Suspect]
     Indication: NASOPHARYNGITIS
     Dosage: UNK
     Route: 065
     Dates: start: 20101128
  13. TRAMADOL HYDROCHLORIDE [Concomitant]
     Indication: PAIN
     Dosage: 50 MG, UNK
  14. PREDNISONE [Concomitant]
     Indication: PAIN
     Dosage: 10 MG, UNK
  15. PENTALAC [Concomitant]
     Indication: GASTROINTESTINAL DISORDER
     Dosage: UNK
  16. MOTILIUM [Concomitant]
     Indication: PRODUCT USED FOR UNKNOWN INDICATION
     Dosage: 10 MG, PRN
  17. RITUXIMAB [Suspect]
     Dosage: UNK
     Route: 042
     Dates: start: 20081204, end: 20081204
  18. TYLENOL-500 [Concomitant]
     Dosage: 500 MG, UNK
  19. LIPLESS [Concomitant]
     Indication: PRODUCT USED FOR UNKNOWN INDICATION
     Dosage: 100 MG, UNK
  20. CYCLOBENZAPRINE [Concomitant]
     Indication: PRODUCT USED FOR UNKNOWN INDICATION
     Dosage: 10 MG, UNK
  21. OMEPRAZOLE [Concomitant]
     Dosage: UNK
  22. TYLENOL-500 [Concomitant]
     Indication: PAIN
     Dosage: 50 MG, UNK
  23. CELEBREX [Concomitant]
     Indication: PAIN
     Dosage: 200 MG, UNK
  24. NEOMYCIN [Concomitant]
     Indication: GASTROINTESTINAL DISORDER
     Dosage: 250 MG, UNK
  25. DOMPERIDONE [Concomitant]
     Indication: PRODUCT USED FOR UNKNOWN INDICATION
     Dosage: 10 MG, PRN
  26. AMLODIPINE [Concomitant]
     Indication: PRODUCT USED FOR UNKNOWN INDICATION
     Dosage: 5 MG, UNK
  27. ACECLOFENAC [Concomitant]
     Indication: PRODUCT USED FOR UNKNOWN INDICATION
     Dosage: 100 MG, UNK

REACTIONS (34)
  - BONE PAIN [None]
  - MUSCULAR WEAKNESS [None]
  - NASOPHARYNGITIS [None]
  - BLOOD CHOLESTEROL INCREASED [None]
  - NAUSEA [None]
  - SKIN MASS [None]
  - GASTRITIS [None]
  - MEMORY IMPAIRMENT [None]
  - BRONCHITIS [None]
  - BODY HEIGHT DECREASED [None]
  - MUSCULOSKELETAL STIFFNESS [None]
  - ANAEMIA [None]
  - DECREASED IMMUNE RESPONSIVENESS [None]
  - PAIN [None]
  - ASTHMATIC CRISIS [None]
  - PROTEIN TOTAL DECREASED [None]
  - SWELLING [None]
  - PALPITATIONS [None]
  - CONSTIPATION [None]
  - MUSCULOSKELETAL DEFORMITY [None]
  - ENCEPHALOPATHY [None]
  - KNEE ARTHROPLASTY [None]
  - ERYTHEMA [None]
  - HEADACHE [None]
  - HYPERTENSION [None]
  - BACK PAIN [None]
  - HEPATITIS C [None]
  - ASTHMA [None]
  - DIZZINESS [None]
  - MUSCULOSKELETAL DISORDER [None]
  - HYPOTENSION [None]
  - CHILLS [None]
  - HYPERAESTHESIA [None]
  - ARTHRALGIA [None]
